FAERS Safety Report 10930238 (Version 2)
Quarter: 2015Q3

REPORT INFORMATION
  Report Type: Spontaneous
  Country: US (occurrence: US)
  Receive Date: 20150319
  Receipt Date: 20150707
  Transmission Date: 20151125
  Serious: Yes (Hospitalization, Other)
  Sender: FDA-Public Use
  Company Number: US-PFIZER INC-2015058111

PATIENT
  Age: 85 Year
  Sex: Female

DRUGS (4)
  1. TYLENOL [Concomitant]
     Active Substance: ACETAMINOPHEN
     Dosage: UNK, AS NEEDED
  2. SUTENT [Suspect]
     Active Substance: SUNITINIB MALATE
     Indication: NEOPLASM
     Dosage: 1 DF, 1X/DAY (1 MONTH OFF AND AFTER 1 PILLS EVERY OTHER DAY)
  3. FLEXERIL [Concomitant]
     Active Substance: CYCLOBENZAPRINE HYDROCHLORIDE
     Dosage: UNK
  4. NORCO [Concomitant]
     Active Substance: ACETAMINOPHEN\HYDROCODONE BITARTRATE
     Indication: SPINAL COLUMN STENOSIS
     Dosage: UNK

REACTIONS (8)
  - Infection [Unknown]
  - Dysgraphia [Unknown]
  - Speech disorder [Not Recovered/Not Resolved]
  - Lower limb fracture [Not Recovered/Not Resolved]
  - Malaise [Unknown]
  - Pneumonia [Unknown]
  - Mental disorder [Unknown]
  - Oedema peripheral [Unknown]
